FAERS Safety Report 11286121 (Version 1)
Quarter: 2015Q3

REPORT INFORMATION
  Report Type: Spontaneous
  Country: US (occurrence: None)
  Receive Date: 20150717
  Receipt Date: 20150717
  Transmission Date: 20151125
  Serious: Yes (Hospitalization)
  Sender: FDA-Public Use
  Company Number: None

PATIENT
  Age: 73 Year
  Sex: Male
  Weight: 54.1 kg

DRUGS (2)
  1. BUDESONIDE/FORMOTEROL [Suspect]
     Active Substance: BUDESONIDE\FORMOTEROL
     Indication: CHRONIC OBSTRUCTIVE PULMONARY DISEASE
     Dosage: 2 PUFF(S)
     Route: 048
     Dates: start: 20120624, end: 20130202
  2. ASPIRIN. [Suspect]
     Active Substance: ASPIRIN
     Indication: HYPERLIPIDAEMIA
     Route: 048

REACTIONS (1)
  - Angioedema [None]

NARRATIVE: CASE EVENT DATE: 20130131
